FAERS Safety Report 7850489-0 (Version None)
Quarter: 2011Q4

REPORT INFORMATION
  Report Type: 
  Country: None (occurrence: None)
  Receive Date: 20111026
  Receipt Date: 20111026
  Transmission Date: 20120403
  Serious: Yes (Other)
  Sender: FDA-Public Use
  Company Number: None

PATIENT
  Age: 7 Year
  Sex: Female
  Weight: 24.5 kg

DRUGS (1)
  1. DAPSONE [Suspect]

REACTIONS (1)
  - METHAEMOGLOBINAEMIA [None]
